FAERS Safety Report 8582781-9 (Version None)
Quarter: 2012Q3

REPORT INFORMATION
  Report Type: 
  Country: None (occurrence: None)
  Receive Date: 20120809
  Receipt Date: 20120801
  Transmission Date: 20120928
  Serious: Yes (Other)
  Sender: FDA-Public Use
  Company Number: US-BAXTER-2012BAX012957

PATIENT
  Sex: Male

DRUGS (2)
  1. DIANEAL [Suspect]
     Indication: PERITONEAL DIALYSIS
     Dosage: 8 LITERS TOTAL FILL VOLUME
     Route: 033
  2. DIANEAL [Suspect]
     Dosage: 8 LITERS TOTAL FILL VOLUME
     Route: 033
     Dates: start: 20110714

REACTIONS (1)
  - EOSINOPHILIA [None]
